FAERS Safety Report 9502702 (Version 1)
Quarter: 2013Q3

REPORT INFORMATION
  Report Type: Spontaneous
  Country: US (occurrence: US)
  Receive Date: 20130906
  Receipt Date: 20130906
  Transmission Date: 20140515
  Serious: No
  Sender: FDA-Public Use
  Company Number: US-BAYER-2013-107770

PATIENT
  Sex: Female

DRUGS (2)
  1. ALEVE CAPLET [Suspect]
     Indication: ARTHRITIS
     Dosage: 2 DF, QD
     Route: 048
  2. BAYER ASPIRIN REGIMEN REGULAR 325 MG STRENGTH [Concomitant]

REACTIONS (2)
  - Drug effect decreased [None]
  - Incorrect drug administration duration [None]
